FAERS Safety Report 7196686-1 (Version None)
Quarter: 2010Q4

REPORT INFORMATION
  Report Type: 
  Country: None (occurrence: None)
  Receive Date: 20101223
  Receipt Date: 20101029
  Transmission Date: 20110411
  Serious: No
  Sender: FDA-Public Use
  Company Number: US-AMGEN-USASP2010002374

PATIENT

DRUGS (2)
  1. ENBREL [Suspect]
     Indication: RHEUMATOID ARTHRITIS
     Dates: start: 20100818
  2. METHOTREXATE (TREXALL) [Concomitant]
     Dosage: 1 MG, UNK
     Dates: start: 20090101

REACTIONS (1)
  - HEPATIC ENZYME INCREASED [None]
